FAERS Safety Report 8500646-5 (Version None)
Quarter: 2012Q3

REPORT INFORMATION
  Report Type: 
  Country: None (occurrence: None)
  Receive Date: 20120710
  Receipt Date: 20120709
  Transmission Date: 20120928
  Serious: Yes (Death)
  Sender: FDA-Public Use
  Company Number: GR-ROCHE-1083312

PATIENT

DRUGS (2)
  1. MABTHERA [Suspect]
     Indication: CHRONIC LYMPHOCYTIC LEUKAEMIA
     Route: 042
     Dates: start: 20120622, end: 20120622
  2. SOLU-MEDROL [Concomitant]
     Indication: CHRONIC LYMPHOCYTIC LEUKAEMIA
     Dosage: FOR 5 DAY
     Route: 042
     Dates: start: 20120621, end: 20120625

REACTIONS (1)
  - PNEUMONIA [None]
